FAERS Safety Report 8204679-8 (Version None)
Quarter: 2012Q1

REPORT INFORMATION
  Report Type: 
  Country: None (occurrence: None)
  Receive Date: 20120309
  Receipt Date: 20120302
  Transmission Date: 20120608
  Serious: Yes (Disabling)
  Sender: FDA-Public Use
  Company Number: AUR-APL-2012-01269

PATIENT
  Age: 43 Year
  Sex: Male
  Weight: 101 kg

DRUGS (13)
  1. RAMIPRIL [Concomitant]
  2. DULOXETINE HYDROCHLORIDE [Concomitant]
  3. QUININE SULFATE [Concomitant]
  4. ACETAMINOPHEN W/ CODEINE [Concomitant]
  5. FENTANYL [Concomitant]
  6. PRAVASTATIN [Concomitant]
  7. VENTOLIN [Concomitant]
  8. PERMETHRIN [Concomitant]
  9. PREABALIN (PREGABALIN) [Concomitant]
  10. TRAXAM  (FELBINAC) [Concomitant]
  11. AMLODIPINE [Suspect]
     Indication: PRODUCT USED FOR UNKNOWN INDICATION
     Dosage: UNKNOWN
     Dates: start: 20111121
  12. SERETIDE (SERETIDE) [Concomitant]
  13. BENDROFLUMETHIAZIDE (BENDRFLUMETHIAZIDE) [Concomitant]

REACTIONS (2)
  - OEDEMA PERIPHERAL [None]
  - JOINT SWELLING [None]
